FAERS Safety Report 22374099 (Version 1)
Quarter: 2023Q2

REPORT INFORMATION
  Report Type: Spontaneous
  Country: GB (occurrence: None)
  Receive Date: 20230526
  Receipt Date: 20230526
  Transmission Date: 20230722
  Serious: Yes (Other)
  Sender: FDA-Public Use
  Company Number: 2023A121635

PATIENT
  Age: 75 Year
  Sex: Male

DRUGS (3)
  1. ANDEXANET ALFA [Suspect]
     Active Substance: ANDEXANET ALFA
     Indication: Haemorrhage
     Route: 040
  2. HEPARIN [Concomitant]
     Active Substance: HEPARIN SODIUM
  3. EDOXABAN [Concomitant]
     Active Substance: EDOXABAN
     Indication: Anticoagulant therapy

REACTIONS (1)
  - Vascular graft thrombosis [Recovered/Resolved]
